FAERS Safety Report 5476324-6 (Version None)
Quarter: 2007Q4

REPORT INFORMATION
  Report Type: 
  Country: None (occurrence: None)
  Receive Date: 20071003
  Receipt Date: 20070924
  Transmission Date: 20080405
  Serious: Yes (Other)
  Sender: FDA-Public Use
  Company Number: DE-GENENTECH-248359

PATIENT
  Sex: Female

DRUGS (5)
  1. RITUXAN [Suspect]
     Indication: BURKITT'S LYMPHOMA
     Route: 064
  2. CYCLOPHOSPHAMIDE [Suspect]
     Indication: BURKITT'S LYMPHOMA
     Route: 064
  3. DOXORUBICIN HCL [Suspect]
     Indication: BURKITT'S LYMPHOMA
     Route: 064
  4. VINCRISTINE [Suspect]
     Indication: BURKITT'S LYMPHOMA
     Route: 064
  5. PREDNISONE [Suspect]
     Indication: BURKITT'S LYMPHOMA
     Route: 064

REACTIONS (2)
  - B-LYMPHOCYTE COUNT DECREASED [None]
  - DRUG EXPOSURE DURING PREGNANCY [None]
